FAERS Safety Report 21285789 (Version 3)
Quarter: 2022Q3

REPORT INFORMATION
  Report Type: Report from Study
  Country: AU (occurrence: AU)
  Receive Date: 20220902
  Receipt Date: 20220926
  Transmission Date: 20221027
  Serious: Yes (Other)
  Sender: FDA-Public Use
  Company Number: AU-NOVARTISPH-NVSC2022AU196544

PATIENT
  Sex: Male

DRUGS (2)
  1. NILOTINIB [Suspect]
     Active Substance: NILOTINIB
     Indication: Chronic myeloid leukaemia
     Dosage: UNK
     Route: 065
     Dates: start: 20190901, end: 20220830
  2. IMATINIB [Suspect]
     Active Substance: IMATINIB
     Indication: Chronic myeloid leukaemia
     Dosage: UNK
     Route: 065
     Dates: start: 20050601, end: 20050601

REACTIONS (8)
  - Myocardial ischaemia [Unknown]
  - Type 2 diabetes mellitus [Unknown]
  - Cardiovascular disorder [Unknown]
  - Metabolic syndrome [Unknown]
  - Angiopathy [Unknown]
  - Peripheral vascular disorder [Unknown]
  - Drug intolerance [Unknown]
  - Hypertension [Unknown]
